FAERS Safety Report 7116286-9 (Version None)
Quarter: 2010Q4

REPORT INFORMATION
  Report Type: 
  Country: None (occurrence: None)
  Receive Date: 20101122
  Receipt Date: 20101109
  Transmission Date: 20110411
  Serious: Yes (Hospitalization)
  Sender: FDA-Public Use
  Company Number: DE-CELGENEUS-062-C5013-09111366

PATIENT
  Age: 80 Year
  Sex: Male
  Weight: 87.2 kg

DRUGS (11)
  1. THALIDOMIDE [Suspect]
     Indication: MULTIPLE MYELOMA
     Route: 048
     Dates: start: 20091007, end: 20091126
  2. THALIDOMIDE [Suspect]
     Route: 048
     Dates: start: 20081203
  3. MELPHALAN HYDROCHLORIDE [Suspect]
     Indication: MULTIPLE MYELOMA
     Route: 065
     Dates: start: 20091007
  4. MELPHALAN HYDROCHLORIDE [Suspect]
     Route: 065
     Dates: start: 20081203
  5. PREDNISONE [Suspect]
     Indication: MULTIPLE MYELOMA
     Route: 065
     Dates: start: 20091007
  6. PREDNISONE [Suspect]
     Dates: start: 20081203
  7. MARCUMAR [Concomitant]
     Indication: THROMBOSIS PROPHYLAXIS
     Route: 048
     Dates: start: 20090420
  8. RAMIPRIL [Concomitant]
     Route: 048
     Dates: start: 20091120
  9. GLYBURIDE [Concomitant]
     Indication: DIABETES MELLITUS
     Route: 048
     Dates: start: 20091117
  10. NULYTELY [Concomitant]
     Indication: CONSTIPATION
     Dosage: 2-3 BAGS
     Route: 048
     Dates: start: 20091119
  11. PRAVASTATIN [Concomitant]
     Route: 048
     Dates: start: 20091124

REACTIONS (1)
  - BRADYARRHYTHMIA [None]
